FAERS Safety Report 9244273 (Version 1)
Quarter: 2013Q1

REPORT INFORMATION
  Report Type: Spontaneous
  Country: US (occurrence: None)
  Receive Date: 20121127
  Receipt Date: 20121127
  Transmission Date: 20140127
  Serious: Yes (Other)
  Sender: FDA-Public Use
  Company Number: FK201200385

PATIENT
  Age: 51 Year
  Sex: Female
  Weight: 59 kg

DRUGS (2)
  1. XYLOCAINE [Suspect]
     Indication: KNEE OPERATION
     Dosage: 20 MG, 20ML WITH  100MCG EPINEPHRINE, EPIDURAL
     Dates: start: 20120124, end: 20120124
  2. SENSORCAINE 0.25% WITH EPINEPHRINE(MARCAINE WITH EPINEPHRINE?/00879801/) [Concomitant]

REACTIONS (1)
  - Drug effect decreased [None]
